FAERS Safety Report 9314673 (Version 2)
Quarter: 2013Q2

REPORT INFORMATION
  Report Type: Spontaneous
  Country: DE (occurrence: DE)
  Receive Date: 20130529
  Receipt Date: 20130626
  Transmission Date: 20140414
  Serious: Yes (Death, Life-Threatening, Other)
  Sender: FDA-Public Use
  Company Number: DE-B.I. PHARMACEUTICALS,INC./RIDGEFIELD-2013-DE-01453DE

PATIENT
  Age: 84 Year
  Sex: Male
  Weight: 85 kg

DRUGS (4)
  1. PRADAXA [Suspect]
     Indication: ATRIAL FIBRILLATION
     Dosage: 220 NR
     Route: 048
  2. NESIRAT [Concomitant]
     Dosage: 5 MG
  3. DEKRISTOL [Concomitant]
     Dosage: 2.8571 MG
  4. TOREM [Concomitant]
     Dosage: 5 MG

REACTIONS (6)
  - Multi-organ failure [Fatal]
  - Pulmonary haemorrhage [Fatal]
  - Gastrointestinal haemorrhage [Fatal]
  - Melaena [Fatal]
  - Haematemesis [Fatal]
  - Renal failure acute [Unknown]
